FAERS Safety Report 5074514-8 (Version None)
Quarter: 2006Q3

REPORT INFORMATION
  Report Type: 
  Country: None (occurrence: None)
  Receive Date: 20060803
  Receipt Date: 20060731
  Transmission Date: 20061208
  Serious: Yes (Hospitalization)
  Sender: FDA-Public Use
  Company Number: IBF20060008

PATIENT
  Age: 18 Year
  Sex: Male

DRUGS (2)
  1. IBUPROFEN [Suspect]
     Indication: BACK PAIN
     Dosage: 7 TABS ONCE PO
     Route: 048
     Dates: start: 20050101, end: 20050101
  2. IBUPROFEN [Suspect]
     Indication: BACK PAIN
     Dosage: 1600MG DAILY PO
     Route: 048

REACTIONS (3)
  - INCORRECT DOSE ADMINISTERED [None]
  - INTENTIONAL SELF-INJURY [None]
  - PANCREATITIS ACUTE [None]
